FAERS Safety Report 5482579-4 (Version None)
Quarter: 2007Q4

REPORT INFORMATION
  Report Type: 
  Country: None (occurrence: None)
  Receive Date: 20071011
  Receipt Date: 20070817
  Transmission Date: 20080405
  Serious: No
  Sender: FDA-Public Use
  Company Number: A0664835A

PATIENT
  Age: 53 Year
  Sex: Female
  Weight: 77.7 kg

DRUGS (7)
  1. TYKERB [Suspect]
     Indication: BREAST CANCER
     Dosage: 1250MGD UNKNOWN
     Route: 048
     Dates: start: 20070619
  2. XELODA [Suspect]
     Indication: BREAST CANCER
     Dosage: 1500MG TWICE PER DAY
     Route: 048
     Dates: start: 20070619
  3. POTASSIUM CHLORIDE [Concomitant]
  4. AMITRIPTYLINE HCL [Concomitant]
  5. NEURONTIN [Concomitant]
  6. PERCOCET [Concomitant]
  7. IMITREX [Concomitant]

REACTIONS (4)
  - DIARRHOEA [None]
  - PRURITUS [None]
  - RASH [None]
  - SWELLING FACE [None]
